FAERS Safety Report 13706238 (Version 2)
Quarter: 2017Q3

REPORT INFORMATION
  Report Type: Report from Study
  Country: BR (occurrence: BR)
  Receive Date: 20170630
  Receipt Date: 20170824
  Transmission Date: 20171127
  Serious: Yes (Death, Hospitalization)
  Sender: FDA-Public Use
  Company Number: BR-PFIZER INC-2017283576

PATIENT

DRUGS (4)
  1. CISPLATIN. [Suspect]
     Active Substance: CISPLATIN
     Indication: OSTEOSARCOMA
     Dosage: 60 MG/M2, CYCLIC(DAYS 1 AND 2)
     Route: 042
  2. METHOTREXATE SODIUM. [Suspect]
     Active Substance: METHOTREXATE SODIUM
     Indication: OSTEOSARCOMA
     Dosage: 8 G/M2 (8000 MG/M2) , CYCLIC (WEEKS 3, 4, 8, AND 9 (MAXIMUM DOSE OF 20 G))
     Route: 042
  3. FOLINIC ACID [Concomitant]
     Active Substance: LEUCOVORIN
     Indication: PROPHYLAXIS
     Dosage: 15 MG, 4X/DAY, (STARTING 24 H AFTER HDM INFUSION)
  4. DOXORUBICIN HCL [Suspect]
     Active Substance: DOXORUBICIN HYDROCHLORIDE
     Indication: OSTEOSARCOMA
     Dosage: 25 MG/M2, CYCLIC (DAYS 1-3 OF WEEKS 0 AND 5)
     Route: 042

REACTIONS (4)
  - Skin toxicity [Unknown]
  - Brain herniation [Fatal]
  - Central nervous system haemorrhage [Fatal]
  - Stomatitis [Unknown]
